FAERS Safety Report 7434385-9 (Version None)
Quarter: 2011Q2

REPORT INFORMATION
  Report Type: 
  Country: None (occurrence: None)
  Receive Date: 20110425
  Receipt Date: 20110412
  Transmission Date: 20111010
  Serious: Yes (Hospitalization, Other)
  Sender: FDA-Public Use
  Company Number: PHHY2010DE19576

PATIENT
  Sex: Female
  Weight: 59 kg

DRUGS (12)
  1. ASPIRIN [Concomitant]
     Dosage: 100 MG, QD
     Route: 048
     Dates: start: 20090101
  2. ALISKIREN [Suspect]
     Indication: HYPERTENSION
     Dosage: 300 MG/D
     Route: 048
     Dates: start: 20090309, end: 20100715
  3. PROCORALAN [Concomitant]
     Dosage: 1 DF, QD
     Route: 048
     Dates: start: 20100101
  4. FLUTICASONE W/SALMETEROL [Concomitant]
     Indication: ASTHMA
     Dosage: UNK
     Dates: start: 20061010
  5. METOPROLOL [Concomitant]
     Dosage: 50 MG, QD
     Route: 048
     Dates: start: 20100715
  6. ISCOVER [Concomitant]
     Dosage: 75 MG, QD
     Route: 048
     Dates: start: 20100101
  7. FLUTICASONE PROPIONATE [Concomitant]
     Dosage: UNK
     Dates: start: 20061010
  8. ATACAND HCT [Concomitant]
     Indication: HYPERTENSION
     Dosage: 16/25 MG
     Route: 048
     Dates: start: 20070101
  9. CALCIUM CHANNEL BLOCKERS [Concomitant]
     Dosage: UNK
     Dates: end: 20091010
  10. SIMVASTATIN [Concomitant]
     Dosage: 1 DF, QD
     Route: 048
     Dates: start: 20090101
  11. LOCOL [Suspect]
     Indication: HYPERCHOLESTEROLAEMIA
     Dosage: 40 MG/D
     Route: 048
     Dates: start: 20061010
  12. ATACAND HCT [Concomitant]
     Dosage: 1 DF, QD (16/12.5 MG)
     Route: 048
     Dates: start: 20100701

REACTIONS (11)
  - CHRONIC OBSTRUCTIVE PULMONARY DISEASE [None]
  - ANGINA PECTORIS [None]
  - LEFT VENTRICULAR HYPERTROPHY [None]
  - LOW DENSITY LIPOPROTEIN INCREASED [None]
  - BLOOD CHOLESTEROL INCREASED [None]
  - CORONARY ARTERY OCCLUSION [None]
  - DYSPNOEA [None]
  - CORONARY ARTERY DISEASE [None]
  - MYOCARDIAL INFARCTION [None]
  - CARDIAC FAILURE [None]
  - ELECTROCARDIOGRAM QT PROLONGED [None]
